FAERS Safety Report 15936708 (Version 1)
Quarter: 2019Q1

REPORT INFORMATION
  Report Type: Spontaneous
  Country: FR (occurrence: FR)
  Receive Date: 20190208
  Receipt Date: 20190208
  Transmission Date: 20190417
  Serious: Yes (Life-Threatening, Other)
  Sender: FDA-Public Use
  Company Number: FR-ACCORD-105704

PATIENT
  Age: 54 Year
  Sex: Female

DRUGS (5)
  1. OXALIPLATIN. [Suspect]
     Active Substance: OXALIPLATIN
     Indication: B-CELL LYMPHOMA
     Dosage: EVERY 3 WEEKS
     Dates: start: 201503
  2. CYTARABINE/CYTARABINE HYDROCHLORIDE/CYTARABINE OCFOSFATE [Concomitant]
     Indication: B-CELL LYMPHOMA
     Dosage: HIGH-DOSE; EVERY 3 WEEKS
     Dates: start: 201503
  3. BENDAMUSTINE/BENDAMUSTINE HYDROCHLORIDE [Concomitant]
     Indication: B-CELL LYMPHOMA
  4. DEXAMETHASONE. [Concomitant]
     Active Substance: DEXAMETHASONE
     Indication: B-CELL LYMPHOMA
     Dosage: EVERY 3 WEEKS
     Dates: start: 201503
  5. RITUXIMAB. [Concomitant]
     Active Substance: RITUXIMAB
     Indication: B-CELL LYMPHOMA
     Dosage: EVERY 3 WEEKS
     Dates: start: 201503

REACTIONS (3)
  - Hepatic encephalopathy [Recovered/Resolved]
  - Venoocclusive disease [Recovered/Resolved]
  - Off label use [Unknown]
